FAERS Safety Report 25109880 (Version 1)
Quarter: 2025Q1

REPORT INFORMATION
  Report Type: Spontaneous
  Country: CA (occurrence: CA)
  Receive Date: 20250324
  Receipt Date: 20250324
  Transmission Date: 20250408
  Serious: Yes (Hospitalization, Other)
  Sender: ALKEM
  Company Number: None

PATIENT
  Age: 48 Year
  Sex: Female

DRUGS (7)
  1. QUETIAPINE FUMARATE [Suspect]
     Active Substance: QUETIAPINE FUMARATE
     Indication: Schizoaffective disorder
     Route: 065
  2. CLOZAPINE [Suspect]
     Active Substance: CLOZAPINE
     Indication: Schizoaffective disorder
     Route: 065
  3. CLOZAPINE [Suspect]
     Active Substance: CLOZAPINE
     Route: 065
  4. CLOZAPINE [Suspect]
     Active Substance: CLOZAPINE
     Dosage: 600 MILLIGRAM, QD
     Route: 065
  5. LORAZEPAM [Suspect]
     Active Substance: LORAZEPAM
     Indication: Schizoaffective disorder
     Dosage: 1 MILLIGRAM, TID (EVERY 8 HOUR)
     Route: 065
  6. PERPHENAZINE [Suspect]
     Active Substance: PERPHENAZINE
     Indication: Schizoaffective disorder
     Route: 065
  7. SERTRALINE [Suspect]
     Active Substance: SERTRALINE HYDROCHLORIDE
     Indication: Schizoaffective disorder
     Dosage: 125 MILLIGRAM, QD
     Route: 065

REACTIONS (5)
  - Tardive dyskinesia [Recovering/Resolving]
  - Dystonia [Recovering/Resolving]
  - Parkinsonism [Recovering/Resolving]
  - Dyskinesia [Recovering/Resolving]
  - Myoclonus [Recovering/Resolving]
